FAERS Safety Report 4447620-6 (Version None)
Quarter: 2004Q3

REPORT INFORMATION
  Report Type: 
  Country: None (occurrence: None)
  Receive Date: 20040823
  Receipt Date: 20040708
  Transmission Date: 20050211
  Serious: No
  Sender: FDA-Public Use
  Company Number: PHEH2004US07314

PATIENT
  Age: 50 Year
  Sex: Female

DRUGS (4)
  1. ZELNORM [Suspect]
     Indication: IRRITABLE BOWEL SYNDROME
     Dosage: 6 MG BID ORAL
     Route: 048
     Dates: start: 20040704
  2. COZAAR [Concomitant]
  3. LASIX [Concomitant]
  4. BUSPAR [Concomitant]

REACTIONS (7)
  - BALANCE DISORDER [None]
  - BLOOD PRESSURE INCREASED [None]
  - BURNING SENSATION [None]
  - CERUMEN IMPACTION [None]
  - FEELING HOT [None]
  - PANIC ATTACK [None]
  - PARAESTHESIA [None]
